FAERS Safety Report 5165747-0 (Version None)
Quarter: 2006Q4

REPORT INFORMATION
  Report Type: 
  Country: None (occurrence: None)
  Receive Date: 20061128
  Receipt Date: 20061113
  Transmission Date: 20070319
  Serious: Yes (Disabling, Other)
  Sender: FDA-Public Use
  Company Number: 2006RR-04449

PATIENT
  Age: 62 Year
  Sex: Female
  Weight: 90 kg

DRUGS (12)
  1. TAMOXIFEN CITRATE [Suspect]
     Indication: BREAST CANCER
     Dosage: 20 MG, ORAL
     Route: 048
     Dates: start: 20061006, end: 20061007
  2. TRAMADOL HCL [Suspect]
     Indication: PAIN
     Dosage: TID, ORAL
     Route: 048
     Dates: start: 20061005, end: 20061007
  3. CLONIDINE [Concomitant]
  4. DICLOFENAC SODIUM [Concomitant]
  5. DILTIAZEM [Concomitant]
  6. ISOSORBIDE MONONITRATE [Concomitant]
  7. METFORMIN/PIOGLITAZONE/GLIMEPIRIDE (GLIMEPIRIDE, PIOGLITAZONE HYDROCHL [Concomitant]
  8. NAVOMIX [Concomitant]
  9. OMEPRAZOLE [Concomitant]
  10. ACETAMINOPHEN [Concomitant]
  11. RAMIPRIL [Concomitant]
  12. SIMVASTATIN [Concomitant]

REACTIONS (4)
  - PAIN [None]
  - PAIN IN EXTREMITY [None]
  - RASH ERYTHEMATOUS [None]
  - SKIN REACTION [None]
